FAERS Safety Report 9949041 (Version 2)
Quarter: 2014Q2

REPORT INFORMATION
  Report Type: Spontaneous
  Country: US (occurrence: US)
  Receive Date: 20140304
  Receipt Date: 20140414
  Transmission Date: 20141212
  Serious: No
  Sender: FDA-Public Use
  Company Number: US-PFIZER INC-2014060249

PATIENT
  Age: 48 Year
  Sex: Female

DRUGS (8)
  1. XALKORI [Suspect]
     Indication: NON-SMALL CELL LUNG CANCER
     Dosage: 200 MG, 2X/DAY
     Route: 048
     Dates: start: 201209
  2. REGLAN [Suspect]
     Indication: GASTROOESOPHAGEAL REFLUX DISEASE
     Dosage: 5 MG, (BEFORE MEALS AND HOURS)
     Route: 048
     Dates: end: 20140114
  3. CARAFATE [Concomitant]
     Dosage: 1 G, (BEFORE MEALS AND HOURS)
     Route: 048
  4. PANTOPRAZOLE [Concomitant]
     Dosage: 40 MG, DAILY
  5. OXYCODONE [Concomitant]
     Indication: PAIN
     Dosage: 5 MG, (4H PRN )
     Route: 048
  6. ATIVAN [Concomitant]
     Dosage: 1.5 MG, (HS)
     Route: 048
  7. ADVAIR 250/50 [Concomitant]
     Dosage: ONE PUFF
  8. YASMIN [Concomitant]
     Dosage: 2 G, DAILY
     Route: 048
     Dates: end: 20140114

REACTIONS (2)
  - Galactorrhoea [Recovering/Resolving]
  - Blood prolactin increased [Recovering/Resolving]
